FAERS Safety Report 5735938-6 (Version None)
Quarter: 2008Q2

REPORT INFORMATION
  Report Type: 
  Country: None (occurrence: None)
  Receive Date: 20080509
  Receipt Date: 20080423
  Transmission Date: 20081010
  Serious: Yes (Hospitalization, Disabling)
  Sender: FDA-Public Use
  Company Number: 2008S1006874

PATIENT
  Age: 16 Month
  Sex: Male

DRUGS (3)
  1. CYCLOSPORINE [Suspect]
     Indication: LYMPHOHISTIOCYTOSIS
  2. DEXAMETHASONE TAB [Suspect]
     Indication: LYMPHOHISTIOCYTOSIS
  3. ETOPOSIDE [Suspect]
     Indication: LYMPHOHISTIOCYTOSIS

REACTIONS (1)
  - ZYGOMYCOSIS [None]
